FAERS Safety Report 5143614-6 (Version None)
Quarter: 2006Q4

REPORT INFORMATION
  Report Type: 
  Country: None (occurrence: None)
  Receive Date: 20061103
  Receipt Date: 20061101
  Transmission Date: 20070319
  Serious: Yes (Other)
  Sender: FDA-Public Use
  Company Number: US-JNJFOC-20061004580

PATIENT
  Age: 44 Year
  Sex: Male
  Weight: 61.24 kg

DRUGS (5)
  1. PROPULSID [Suspect]
     Indication: GASTROINTESTINAL DISORDER
  2. ERYTHROMYCIN [Concomitant]
     Indication: NASOPHARYNGITIS
  3. VALIUM [Concomitant]
  4. DARVOCET [Concomitant]
     Indication: PAIN
  5. HEART MEDICATIONS [Concomitant]
     Indication: CARDIAC DISORDER

REACTIONS (4)
  - CARDIAC FAILURE [None]
  - CARDIAC VALVE DISEASE [None]
  - CEREBROVASCULAR ACCIDENT [None]
  - MYOCARDIAL INFARCTION [None]
